FAERS Safety Report 7091612-8 (Version None)
Quarter: 2010Q4

REPORT INFORMATION
  Report Type: 
  Country: None (occurrence: None)
  Receive Date: 20101109
  Receipt Date: 20101104
  Transmission Date: 20110411
  Serious: Yes (Hospitalization, Other)
  Sender: FDA-Public Use
  Company Number: FR-PFIZER INC-2010140427

PATIENT
  Age: 28 Year
  Sex: Male

DRUGS (5)
  1. ZITHROMAX [Suspect]
     Indication: EYE INFECTION TOXOPLASMAL
     Dosage: 250 MG, 1X/DAY
     Route: 048
     Dates: start: 20100908, end: 20100912
  2. MALOCIDE [Suspect]
     Indication: EYE INFECTION TOXOPLASMAL
     Dosage: 50 MG, 1X/DAY
     Route: 048
     Dates: start: 20100908, end: 20100912
  3. SPECIAFOLDINE [Suspect]
     Indication: EYE INFECTION TOXOPLASMAL
     Dosage: 5 MG, 1X/DAY
     Route: 048
     Dates: start: 20100908, end: 20100912
  4. CORTANCYL [Concomitant]
     Indication: EYE INFECTION TOXOPLASMAL
     Dosage: 60 MG, UNK
  5. MOPRAL [Concomitant]
     Indication: EYE INFECTION TOXOPLASMAL

REACTIONS (3)
  - DERMATITIS EXFOLIATIVE [None]
  - DYSPNOEA [None]
  - LARYNGOSPASM [None]
